FAERS Safety Report 5272115-X (Version None)
Quarter: 2007Q1

REPORT INFORMATION
  Report Type: 
  Country: None (occurrence: None)
  Receive Date: 20070320
  Receipt Date: 20070320
  Transmission Date: 20070707
  Serious: Yes (Other)
  Sender: FDA-Public Use
  Company Number: None

PATIENT
  Age: 80 Year
  Sex: Female
  Weight: 56.6996 kg

DRUGS (1)
  1. CEFTRIAXONE [Suspect]
     Indication: POST PROCEDURAL INFECTION
     Dosage: 1000MG DAILY IV
     Route: 042
     Dates: start: 20070223, end: 20070307

REACTIONS (1)
  - RASH ERYTHEMATOUS [None]
